FAERS Safety Report 17974143 (Version 5)
Quarter: 2020Q3

REPORT INFORMATION
  Report Type: Report from Study
  Country: MX (occurrence: MX)
  Receive Date: 20200702
  Receipt Date: 20200908
  Transmission Date: 20201104
  Serious: Yes (Life-Threatening)
  Sender: FDA-Public Use
  Company Number: MX-ULTRAGENYX PHARMACEUTICAL INC.-MX-UGNX-20-00120

PATIENT
  Age: 2 Year
  Sex: Female

DRUGS (11)
  1. VESTRONIDASE ALFA. [Suspect]
     Active Substance: VESTRONIDASE ALFA
     Indication: MUCOPOLYSACCHARIDOSIS VII
     Route: 042
     Dates: start: 20190611
  2. LEVOTHYROXINE. [Interacting]
     Active Substance: LEVOTHYROXINE
     Route: 048
     Dates: start: 20200625
  3. CAPTOPRIL. [Concomitant]
     Active Substance: CAPTOPRIL
     Route: 048
     Dates: start: 20200624
  4. VESTRONIDASE ALFA. [Interacting]
     Active Substance: VESTRONIDASE ALFA
     Dosage: 50 MG, 2.5% IN THE FIRST HOUR AND 97.5% IN THE NEXT THREE HOURS
     Route: 042
     Dates: start: 20200625, end: 20200625
  5. FUROSEMIDE. [Concomitant]
     Active Substance: FUROSEMIDE
     Indication: CONGENITAL MITRAL VALVE INCOMPETENCE
     Route: 048
     Dates: start: 201712
  6. SPIRONOLACTONE. [Concomitant]
     Active Substance: SPIRONOLACTONE
     Route: 048
     Dates: start: 20200624
  7. CAPTOPRIL. [Concomitant]
     Active Substance: CAPTOPRIL
     Indication: CONGENITAL MITRAL VALVE INCOMPETENCE
     Route: 048
     Dates: start: 201712
  8. LEVOTHYROXINE. [Interacting]
     Active Substance: LEVOTHYROXINE
     Indication: HYPOTHYROIDISM
     Route: 048
     Dates: start: 202003
  9. SPIRONOLACTONE. [Concomitant]
     Active Substance: SPIRONOLACTONE
     Indication: CONGENITAL MITRAL VALVE INCOMPETENCE
     Route: 048
     Dates: start: 201712
  10. VESTRONIDASE ALFA. [Interacting]
     Active Substance: VESTRONIDASE ALFA
     Dosage: 50 MG, 2.5% IN THE FIRST HOUR AND 97.5% IN THE NEXT 5.5 HOURS?IN THE SECOND HOUR, THE DOSE WAS INCRE
     Route: 042
     Dates: start: 20200723
  11. FUROSEMIDE. [Concomitant]
     Active Substance: FUROSEMIDE
     Route: 048
     Dates: start: 20200624

REACTIONS (2)
  - Hypersensitivity [Recovered/Resolved]
  - Drug interaction [Recovered/Resolved]

NARRATIVE: CASE EVENT DATE: 20200625
